FAERS Safety Report 5299831-8 (Version None)
Quarter: 2007Q2

REPORT INFORMATION
  Report Type: 
  Country: None (occurrence: None)
  Receive Date: 20070417
  Receipt Date: 20070405
  Transmission Date: 20071010
  Serious: Yes (Other)
  Sender: FDA-Public Use
  Company Number: CA-PFIZER INC-2007028767

PATIENT
  Age: 60 Year
  Sex: Female

DRUGS (6)
  1. LYRICA [Suspect]
     Indication: CARPAL TUNNEL SYNDROME
     Route: 048
  2. LYRICA [Suspect]
     Indication: BACK PAIN
  3. LYRICA [Suspect]
     Indication: BURNING SENSATION
  4. ARTHROTEC [Concomitant]
     Route: 048
  5. FENTANYL [Concomitant]
     Route: 062
  6. OXYCOCET [Concomitant]

REACTIONS (4)
  - ACTIVITIES OF DAILY LIVING IMPAIRED [None]
  - CREATININE RENAL CLEARANCE DECREASED [None]
  - DEPRESSION [None]
  - EMOTIONAL DISORDER [None]
